FAERS Safety Report 17258889 (Version 1)
Quarter: 2020Q1

REPORT INFORMATION
  Report Type: Spontaneous
  Country: US (occurrence: US)
  Receive Date: 20200110
  Receipt Date: 20200110
  Transmission Date: 20200409
  Serious: Yes (Hospitalization, Disabling, Other)
  Sender: FDA-Public Use
  Company Number: US-009507513-1008USA03193

PATIENT
  Sex: Female

DRUGS (8)
  1. MEDROL [Concomitant]
     Active Substance: METHYLPREDNISOLONE
     Indication: POLYARTHRITIS
     Dosage: 2 MG, UNK
     Dates: start: 1978, end: 2001
  2. MEDROL [Concomitant]
     Active Substance: METHYLPREDNISOLONE
     Dosage: 4 MG, UNK
     Dates: start: 2001
  3. FOSAMAX [Suspect]
     Active Substance: ALENDRONATE SODIUM
     Indication: OSTEOPENIA
  4. MOTRIN [Concomitant]
     Active Substance: IBUPROFEN
     Indication: PAIN
     Dosage: 500 MG, TID
  5. FOSAMAX [Suspect]
     Active Substance: ALENDRONATE SODIUM
     Indication: OSTEOPOROSIS
     Dosage: 70 MG, QW
     Route: 048
     Dates: start: 200102, end: 20080826
  6. FEMHRT [Concomitant]
     Active Substance: ETHINYL ESTRADIOL\NORETHINDRONE ACETATE
     Indication: HORMONE REPLACEMENT THERAPY
     Dates: start: 20071115
  7. FOSAMAX PLUS D [Suspect]
     Active Substance: ALENDRONATE SODIUM\CHOLECALCIFEROL
     Indication: OSTEOPENIA
     Dosage: UNK
     Route: 048
     Dates: start: 20080320, end: 20080901
  8. SYNTHROID [Concomitant]
     Active Substance: LEVOTHYROXINE SODIUM
     Indication: HYPOTHYROIDISM
     Dosage: .2 MG, UNK
     Dates: start: 196903

REACTIONS (86)
  - Polyarthritis [Not Recovered/Not Resolved]
  - Cyst [Unknown]
  - Fracture nonunion [Not Recovered/Not Resolved]
  - Joint dislocation [Not Recovered/Not Resolved]
  - Fall [Unknown]
  - Muscle strain [Unknown]
  - Tooth fracture [Unknown]
  - Oral disorder [Unknown]
  - Tooth disorder [Unknown]
  - Tooth deposit [Unknown]
  - Menopausal symptoms [Unknown]
  - Tendonitis [Unknown]
  - Muscle strain [Unknown]
  - Radicular pain [Unknown]
  - Sciatica [Unknown]
  - Lumbar spinal stenosis [Unknown]
  - Spondylolisthesis [Unknown]
  - Anaemia postoperative [Recovered/Resolved]
  - Gait disturbance [Unknown]
  - Spinal disorder [Unknown]
  - Soft tissue disorder [Unknown]
  - Tooth disorder [Unknown]
  - Tooth disorder [Unknown]
  - Tooth disorder [Unknown]
  - Myalgia [Unknown]
  - Spinal osteoarthritis [Not Recovered/Not Resolved]
  - Tenosynovitis [Not Recovered/Not Resolved]
  - Stress [Unknown]
  - Joint swelling [Unknown]
  - Muscle tightness [Unknown]
  - Tooth disorder [Unknown]
  - Mouth haemorrhage [Unknown]
  - Tooth fracture [Unknown]
  - Vitamin D deficiency [Not Recovered/Not Resolved]
  - Cervical radiculopathy [Unknown]
  - Rheumatoid arthritis [Unknown]
  - Low turnover osteopathy [Unknown]
  - Lumbar radiculopathy [Recovered/Resolved]
  - Pain in extremity [Unknown]
  - Muscle spasms [Unknown]
  - Synovitis [Unknown]
  - Tongue ulceration [Unknown]
  - Gingival disorder [Unknown]
  - Gingivitis [Unknown]
  - Tooth disorder [Unknown]
  - Spinal osteoarthritis [Unknown]
  - Polyarthritis [Not Recovered/Not Resolved]
  - Stress fracture [Unknown]
  - Influenza [Recovered/Resolved]
  - Tenosynovitis [Unknown]
  - Diarrhoea [Recovered/Resolved]
  - Muscle spasms [Unknown]
  - Temporomandibular joint syndrome [Unknown]
  - Neck pain [Unknown]
  - Gingival disorder [Unknown]
  - Dental plaque [Unknown]
  - Dental caries [Unknown]
  - Lumbosacral radiculopathy [Not Recovered/Not Resolved]
  - Pathological fracture [Not Recovered/Not Resolved]
  - Colitis microscopic [Unknown]
  - Synovial cyst [Unknown]
  - Paraesthesia [Not Recovered/Not Resolved]
  - Spinal osteoarthritis [Unknown]
  - Epicondylitis [Unknown]
  - Synovitis [Unknown]
  - Tooth fracture [Unknown]
  - Epicondylitis [Not Recovered/Not Resolved]
  - Contusion [Not Recovered/Not Resolved]
  - Blood pressure abnormal [Not Recovered/Not Resolved]
  - Hand fracture [Recovered/Resolved]
  - Femur fracture [Not Recovered/Not Resolved]
  - Persistent depressive disorder [Not Recovered/Not Resolved]
  - Hypoaesthesia [Unknown]
  - Pelvic pain [Unknown]
  - Tendonitis [Unknown]
  - Arthropathy [Unknown]
  - Cyst [Unknown]
  - Carpal tunnel syndrome [Not Recovered/Not Resolved]
  - Adverse reaction [Unknown]
  - Bruxism [Unknown]
  - Peripheral nerve lesion [Not Recovered/Not Resolved]
  - Osteoporosis [Unknown]
  - Neuropathy peripheral [Not Recovered/Not Resolved]
  - Fracture delayed union [Not Recovered/Not Resolved]
  - Temporomandibular joint syndrome [Unknown]
  - Senile osteoporosis [Not Recovered/Not Resolved]

NARRATIVE: CASE EVENT DATE: 200105
